FAERS Safety Report 14899019 (Version 1)
Quarter: 2018Q2

REPORT INFORMATION
  Report Type: Spontaneous
  Country: FR (occurrence: FR)
  Receive Date: 20180516
  Receipt Date: 20180516
  Transmission Date: 20180711
  Serious: Yes (Other)
  Sender: FDA-Public Use
  Company Number: FR-MERCK KGAA-2047847

PATIENT
  Age: 71 Year
  Sex: Female

DRUGS (1)
  1. NOVOTHYROX [Suspect]
     Active Substance: LEVOTHYROXINE SODIUM
     Indication: THYROID STIMULATING HORMONE DEFICIENCY
     Dates: start: 201704

REACTIONS (30)
  - Hyperhidrosis [Recovering/Resolving]
  - Asthenia [None]
  - Burning sensation [None]
  - Pruritus [None]
  - Pharyngeal oedema [None]
  - Weight decreased [None]
  - Apathy [None]
  - Impaired driving ability [None]
  - Nausea [Recovered/Resolved]
  - Anxiety [None]
  - Peripheral swelling [None]
  - Family stress [None]
  - Suicidal ideation [None]
  - Pain in extremity [None]
  - Fatigue [Recovering/Resolving]
  - Visual impairment [None]
  - Swelling [None]
  - Affective disorder [None]
  - Hypokinesia [None]
  - Dizziness [None]
  - Alopecia [None]
  - Decreased appetite [None]
  - Loss of personal independence in daily activities [None]
  - Malaise [None]
  - Depression [None]
  - Blood thyroid stimulating hormone increased [None]
  - Narcolepsy [None]
  - Insomnia [None]
  - Social avoidant behaviour [None]
  - Hypoaesthesia [None]

NARRATIVE: CASE EVENT DATE: 201704
